FAERS Safety Report 5309049-8 (Version None)
Quarter: 2007Q2

REPORT INFORMATION
  Report Type: 
  Country: None (occurrence: None)
  Receive Date: 20070420
  Receipt Date: 20070404
  Transmission Date: 20071010
  Serious: Yes (Hospitalization)
  Sender: FDA-Public Use
  Company Number: DSA_29751_2007

PATIENT
  Sex: Male

DRUGS (4)
  1. DILTIAZEM HCL [Suspect]
     Dosage: 200 MG QD ORAL
     Route: 048
     Dates: start: 20070223, end: 20070302
  2. ASPEGIC 1000 [Suspect]
     Dosage: 1000 MG TID ORAL
     Route: 048
     Dates: start: 20070223
  3. MOPRAL (MOPRAL) 20 MG [Suspect]
     Dosage: 20 MG QD ORAL
     Route: 048
     Dates: start: 20070223
  4. COVERSYL /00790701/ (COVERSYL) 2 MG [Suspect]
     Dosage: 2 MG QD ORAL
     Route: 048
     Dates: start: 20070223, end: 20070301

REACTIONS (3)
  - DERMATITIS INFECTED [None]
  - Q FEVER [None]
  - TOXIC SKIN ERUPTION [None]
